FAERS Safety Report 4331147-6 (Version None)
Quarter: 2004Q1

REPORT INFORMATION
  Report Type: 
  Country: None (occurrence: None)
  Receive Date: 20040331
  Receipt Date: 20040301
  Transmission Date: 20041129
  Serious: Yes (Hospitalization)
  Sender: FDA-Public Use
  Company Number: 2004IM000411

PATIENT
  Age: 57 Year
  Sex: Male

DRUGS (3)
  1. INFERAX (INTERFERON ALFACON-1) [Suspect]
     Indication: HEPATITIS C
     Dosage: 9 UG; QD; SUBCUTANEOUS
     Route: 058
     Dates: start: 20030627, end: 20040218
  2. INFEX (BEING QUERIED) [Suspect]
     Indication: HEPATITIS C
     Dosage: 200 MG; QD; ORAL
     Route: 048
     Dates: start: 20030627, end: 20040218
  3. REBETOL [Suspect]
     Indication: HEPATITIS C
     Dosage: 800 MG; ORAL
     Route: 048
     Dates: start: 20030627, end: 20040218

REACTIONS (3)
  - CONFUSIONAL STATE [None]
  - FATIGUE [None]
  - PERSONALITY CHANGE [None]
